FAERS Safety Report 10723812 (Version 1)
Quarter: 2015Q1

REPORT INFORMATION
  Report Type: Spontaneous
  Country: IT (occurrence: IT)
  Receive Date: 20150120
  Receipt Date: 20150120
  Transmission Date: 20150721
  Serious: Yes (Other)
  Sender: FDA-Public Use
  Company Number: IT-WATSON-2015-00195

PATIENT
  Age: 49 Year
  Sex: Female
  Weight: 66 kg

DRUGS (2)
  1. CYCLOPHOSPHAMIDE (UNKNOWN) [Suspect]
     Active Substance: CYCLOPHOSPHAMIDE
     Indication: BORDERLINE OVARIAN TUMOUR
     Dosage: 1000 MG, CYCLICAL
     Route: 042
     Dates: start: 20140526, end: 20140728
  2. CARBOPLATIN (UNKNOWN) [Suspect]
     Active Substance: CARBOPLATIN
     Indication: BORDERLINE OVARIAN TUMOUR
     Dosage: 530 MG, CYCLICAL
     Route: 042
     Dates: start: 20140526, end: 20140728

REACTIONS (3)
  - Nausea [Recovering/Resolving]
  - Neutropenia [Recovering/Resolving]
  - Infusion related reaction [Recovered/Resolved]

NARRATIVE: CASE EVENT DATE: 20140601
